FAERS Safety Report 21426064 (Version 1)
Quarter: 2022Q4

REPORT INFORMATION
  Report Type: Spontaneous
  Country: NL (occurrence: NL)
  Receive Date: 20221008
  Receipt Date: 20221008
  Transmission Date: 20230113
  Serious: Yes (Other)
  Sender: FDA-Public Use
  Company Number: None

PATIENT
  Sex: Female
  Weight: 98 kg

DRUGS (4)
  1. LETROZOLE [Suspect]
     Active Substance: LETROZOLE
     Indication: Metastases to lung
     Dosage: 2.5 MILLIGRAM DAILY; 1 X PER DAY 1 PIECE , BRAND NAME NOT SPECIFIED , DURATION : 301 DAYS , FORM STR
     Dates: start: 20211110, end: 20220907
  2. LERCANIDIPINE [Concomitant]
     Active Substance: LERCANIDIPINE
     Indication: Product used for unknown indication
     Dosage: FORM STRENGTH :  10 MG (MILLIGRAM) ,  BRAND NAME NOT SPECIFIED , THERAPY START DATE AND END DATE : A
  3. DESLORATADINE [Concomitant]
     Active Substance: DESLORATADINE
     Indication: Product used for unknown indication
     Dosage: FORM STRENGTH : 5 MG (MILLIGRAM) ,  / BRAND NAME NOT SPECIFIED , THERAPY START DATE AND END DATE : A
  4. FOSINOPRIL [Concomitant]
     Active Substance: FOSINOPRIL
     Indication: Product used for unknown indication
     Dosage: FORM STRENGTH :  10 MG (MILLIGRAM) ,  BRAND NAME NOT SPECIFIED , THERAPY START DATE AND END DATE : A

REACTIONS (1)
  - Hypertensive crisis [Recovered/Resolved]
